FAERS Safety Report 17889647 (Version 1)
Quarter: 2020Q2

REPORT INFORMATION
  Report Type: Spontaneous
  Country: US (occurrence: US)
  Receive Date: 20200612
  Receipt Date: 20200612
  Transmission Date: 20200714
  Serious: Yes (Hospitalization, Other)
  Sender: FDA-Public Use
  Company Number: US-MACLEODS PHARMACEUTICALS US LTD-MAC2020026781

PATIENT

DRUGS (2)
  1. DIPHENHYDRAMINE. [Suspect]
     Active Substance: DIPHENHYDRAMINE
     Indication: DEMENTIA
     Dosage: 25 MILLIGRAM, SINGLE (ONE DOSE) (TOTAL)
     Route: 042
  2. OLANZAPINE 5 MG [Suspect]
     Active Substance: OLANZAPINE
     Indication: DEMENTIA
     Dosage: 5 MILLIGRAM, QD, LOW DOSE
     Route: 065

REACTIONS (2)
  - Delirium [Unknown]
  - Extrapyramidal disorder [Recovered/Resolved]
